FAERS Safety Report 18794947 (Version 1)
Quarter: 2021Q1

REPORT INFORMATION
  Report Type: Spontaneous
  Country: US (occurrence: US)
  Receive Date: 20210127
  Receipt Date: 20210127
  Transmission Date: 20210419
  Serious: No
  Sender: FDA-Public Use
  Company Number: US-EMERGENT BIOSOLUTIONS,-20000526SP

PATIENT
  Sex: Female

DRUGS (2)
  1. NALOXONE [Suspect]
     Active Substance: NALOXONE
     Indication: OVERDOSE
     Dosage: 2 DOSAGE FORM (2 INJECTIONS)
     Route: 030
  2. NARCAN [Suspect]
     Active Substance: NALOXONE HYDROCHLORIDE
     Indication: OVERDOSE
     Dosage: 4 MILLIGRAM
     Route: 045

REACTIONS (2)
  - Vomiting [Not Recovered/Not Resolved]
  - Asthenia [Not Recovered/Not Resolved]
